FAERS Safety Report 6038100-5 (Version None)
Quarter: 2009Q1

REPORT INFORMATION
  Report Type: 
  Country: None (occurrence: None)
  Receive Date: 20090115
  Receipt Date: 20090106
  Transmission Date: 20090719
  Serious: Yes (Hospitalization)
  Sender: FDA-Public Use
  Company Number: IE-WYE-H07638309

PATIENT

DRUGS (1)
  1. CORDARONE [Suspect]
     Dosage: DOSE AND FREQUENCY NOT SPECIFIED
     Route: 042

REACTIONS (2)
  - HEPATIC FAILURE [None]
  - MULTI-ORGAN FAILURE [None]
